FAERS Safety Report 5597316-2 (Version None)
Quarter: 2008Q1

REPORT INFORMATION
  Report Type: 
  Country: None (occurrence: None)
  Receive Date: 20080121
  Receipt Date: 20080110
  Transmission Date: 20080703
  Serious: Yes (Hospitalization)
  Sender: FDA-Public Use
  Company Number: US-JNJFOC-20080102911

PATIENT
  Sex: Female
  Weight: 69.85 kg

DRUGS (6)
  1. FENTANYL TRANSDERMAL SYSTEM [Suspect]
     Indication: PAIN
     Route: 062
  2. UNKNOWN MEDICATION [Concomitant]
     Indication: CONSTIPATION
     Route: 054
  3. KLONOPIN [Concomitant]
     Indication: ANXIETY
     Route: 048
  4. UNKNOWN MEDICATION [Concomitant]
     Indication: BIPOLAR DISORDER
     Route: 048
  5. ABILIFY [Concomitant]
     Indication: BIPOLAR DISORDER
     Route: 048
  6. TOPAMAX [Concomitant]
     Indication: BIPOLAR DISORDER
     Route: 048

REACTIONS (5)
  - COLITIS [None]
  - CYST [None]
  - DRUG ADMINISTERED AT INAPPROPRIATE SITE [None]
  - INTESTINAL OBSTRUCTION [None]
  - THYROID DISORDER [None]
